FAERS Safety Report 19786290 (Version 1)
Quarter: 2021Q3

REPORT INFORMATION
  Report Type: Spontaneous
  Country: US (occurrence: US)
  Receive Date: 20210903
  Receipt Date: 20210903
  Transmission Date: 20211014
  Serious: No
  Sender: FDA-Public Use
  Company Number: US-BAYER-2021-202246

PATIENT
  Age: 74 Year
  Sex: Female

DRUGS (1)
  1. ALEVE [Suspect]
     Active Substance: NAPROXEN SODIUM
     Dosage: UNK UNK, BID
     Route: 048
     Dates: start: 20210711, end: 20210824

REACTIONS (3)
  - Weight increased [Unknown]
  - Injection site swelling [Unknown]
  - Injection site vesicles [Unknown]
